FAERS Safety Report 4727508-3 (Version None)
Quarter: 2005Q3

REPORT INFORMATION
  Report Type: 
  Country: None (occurrence: None)
  Receive Date: 20050727
  Receipt Date: 20050727
  Transmission Date: 20060218
  Serious: Yes (Hospitalization)
  Sender: FDA-Public Use
  Company Number: None

PATIENT
  Sex: Male

DRUGS (8)
  1. PHENYTOIN [Suspect]
     Indication: TRAUMATIC BRAIN INJURY
     Dosage: 300 MG   NIGHTLY    OTHER
     Route: 050
     Dates: start: 20050520, end: 20050601
  2. RANITIDINE [Concomitant]
  3. ALUMINUM MAG/SIMETHICONE [Concomitant]
  4. DOCUSATE SODIUM [Concomitant]
  5. ACETAMINOPHEN [Concomitant]
  6. TEMAZEPAM [Concomitant]
  7. POTASSIUM CHLORIDE [Concomitant]
  8. THROAT LOZENGES [Concomitant]

REACTIONS (3)
  - IMMUNE SYSTEM DISORDER [None]
  - MUCOSAL HAEMORRHAGE [None]
  - THROMBOCYTOPENIA [None]
